FAERS Safety Report 20703439 (Version 1)
Quarter: 2022Q2

REPORT INFORMATION
  Report Type: Spontaneous
  Country: CA (occurrence: CA)
  Receive Date: 20220413
  Receipt Date: 20220413
  Transmission Date: 20220720
  Serious: Yes (Hospitalization)
  Sender: FDA-Public Use
  Company Number: CA-009507513-2204CAN003202

PATIENT
  Age: 67 Year
  Sex: Male
  Weight: 68.934 kg

DRUGS (1)
  1. KEYTRUDA [Suspect]
     Active Substance: PEMBROLIZUMAB
     Indication: Monoclonal antibody immunoconjugate therapy
     Dosage: SOLUTION INTRAVENOUS 100 MILLIGRAM, EVERY 3 WEEKS
     Route: 042

REACTIONS (2)
  - Erythema [Recovered/Resolved]
  - Rash [Recovered/Resolved]
